FAERS Safety Report 9225686 (Version 2)
Quarter: 2013Q3

REPORT INFORMATION
  Report Type: Report from Study
  Country: JP (occurrence: JP)
  Receive Date: 20130411
  Receipt Date: 20130913
  Transmission Date: 20140515
  Serious: Yes (Other)
  Sender: FDA-Public Use
  Company Number: JP-GLAXOSMITHKLINE-B0624187A

PATIENT
  Age: 63 Year
  Sex: Female
  Weight: 71 kg

DRUGS (7)
  1. TYKERB [Suspect]
     Indication: BREAST CANCER
     Route: 048
     Dates: start: 20091222
  2. XELODA [Suspect]
     Indication: PRODUCT USED FOR UNKNOWN INDICATION
     Route: 048
     Dates: start: 20091222, end: 20110704
  3. XELODA [Suspect]
     Route: 048
     Dates: start: 20110705
  4. ZOMETA [Concomitant]
     Indication: BREAST CANCER
     Route: 042
     Dates: start: 20080930
  5. GASTER [Concomitant]
     Indication: ABDOMINAL PAIN UPPER
     Route: 048
     Dates: start: 20091228
  6. WAKADENIN [Concomitant]
     Indication: NEURALGIA
     Route: 048
     Dates: start: 20091228
  7. RINDERON [Concomitant]
     Indication: BRAIN OEDEMA
     Route: 048
     Dates: start: 20091222

REACTIONS (5)
  - Erythema multiforme [Recovered/Resolved]
  - Paronychia [Recovered/Resolved]
  - Diarrhoea [Recovered/Resolved]
  - Abdominal pain [Recovering/Resolving]
  - Diarrhoea [Recovering/Resolving]
